FAERS Safety Report 25160231 (Version 1)
Quarter: 2025Q2

REPORT INFORMATION
  Report Type: Spontaneous
  Country: HU (occurrence: HU)
  Receive Date: 20250404
  Receipt Date: 20250404
  Transmission Date: 20250717
  Serious: Yes (Death)
  Sender: NOVARTIS
  Company Number: HU-002147023-NVSC2025HU055794

PATIENT

DRUGS (1)
  1. SCEMBLIX [Suspect]
     Active Substance: ASCIMINIB HYDROCHLORIDE
     Indication: Chronic myeloid leukaemia
     Route: 065

REACTIONS (2)
  - Chronic myeloid leukaemia [Fatal]
  - Malignant neoplasm progression [Fatal]
